FAERS Safety Report 4305961-7 (Version None)
Quarter: 2004Q1

REPORT INFORMATION
  Report Type: 
  Country: None (occurrence: None)
  Receive Date: 20040225
  Receipt Date: 20040213
  Transmission Date: 20041129
  Serious: Yes (Life-Threatening)
  Sender: FDA-Public Use
  Company Number: 04P-056-0250660-00

PATIENT
  Age: 47 Year
  Sex: Female

DRUGS (5)
  1. ULTANE [Suspect]
     Indication: ANAESTHESIA
     Dosage: 1 DOSAGE FORMS, ONCE, INHALATION
     Route: 055
     Dates: start: 20040130, end: 20040130
  2. PROPOFOL [Suspect]
     Dosage: 200 MG, INTRAVENOUS
     Route: 042
     Dates: start: 20040130, end: 20040130
  3. ALFENTANIL [Suspect]
     Dosage: 2 MG, INTRAVENOUS
     Route: 042
     Dates: start: 20040130, end: 20040130
  4. CEFUROXIME [Suspect]
     Dosage: 1.5 GM, INTRAVENOUS
     Route: 042
     Dates: start: 20040130, end: 20040130
  5. RINGER'S [Suspect]
     Dosage: 1 DOSAGE FORMS, INTRAVENOUS
     Route: 042
     Dates: start: 20040130, end: 20040130

REACTIONS (4)
  - ANAPHYLACTOID REACTION [None]
  - BRONCHOSPASM [None]
  - GENERALISED ERYTHEMA [None]
  - HYPOTENSION [None]
